FAERS Safety Report 25837586 (Version 1)
Quarter: 2025Q3

REPORT INFORMATION
  Report Type: Spontaneous
  Country: US (occurrence: None)
  Receive Date: 20250923
  Receipt Date: 20250923
  Transmission Date: 20251020
  Serious: No
  Sender: FDA-CTU
  Company Number: None

PATIENT
  Age: 50 Year
  Sex: Female
  Weight: 65.25 kg

DRUGS (4)
  1. OLAY COMPLETE PLUS DAILY FACIAL MOISTURIZER WITH SUNSCREEN BROAD SPECT [Suspect]
     Active Substance: AVOBENZONE\HOMOSALATE\OCTISALATE\OCTOCRYLENE
     Indication: Dry skin prophylaxis
     Route: 061
     Dates: start: 20250831, end: 20250903
  2. WEGOVY [Concomitant]
     Active Substance: SEMAGLUTIDE
  3. VITAMINS [Concomitant]
     Active Substance: VITAMINS
  4. LORATADINE [Concomitant]
     Active Substance: LORATADINE

REACTIONS (6)
  - Eye irritation [None]
  - Ocular hyperaemia [None]
  - Lacrimation increased [None]
  - Eye pruritus [None]
  - Eye allergy [None]
  - Therapy cessation [None]

NARRATIVE: CASE EVENT DATE: 20250831
